FAERS Safety Report 5911652-9 (Version None)
Quarter: 2008Q4

REPORT INFORMATION
  Report Type: 
  Country: None (occurrence: None)
  Receive Date: 20081003
  Receipt Date: 20080914
  Transmission Date: 20090506
  Serious: Yes (Other)
  Sender: FDA-Public Use
  Company Number: 2008S1009164

PATIENT
  Age: 64 Year
  Sex: Female

DRUGS (1)
  1. PHOSPHOSODA FLAVOR NOT SPECIFIED [Suspect]
     Indication: COLONOSCOPY
     Dosage: 90 ML; PO
     Route: 048
     Dates: start: 20050619, end: 20050619

REACTIONS (13)
  - ABASIA [None]
  - ANAEMIA [None]
  - ASTHENIA [None]
  - BACK PAIN [None]
  - DEHYDRATION [None]
  - DIALYSIS [None]
  - FATIGUE [None]
  - INSOMNIA [None]
  - MALAISE [None]
  - NAUSEA [None]
  - PAIN [None]
  - RENAL FAILURE CHRONIC [None]
  - SWELLING [None]
